FAERS Safety Report 11111272 (Version 2)
Quarter: 2016Q3

REPORT INFORMATION
  Report Type: Spontaneous
  Country: FR (occurrence: FR)
  Receive Date: 20150513
  Receipt Date: 20160729
  Transmission Date: 20161109
  Serious: Yes (Hospitalization, Other)
  Sender: FDA-Public Use
  Company Number: FR-BRISTOL-MYERS SQUIBB COMPANY-19718469

PATIENT
  Sex: Female

DRUGS (2)
  1. MITOTANE [Suspect]
     Active Substance: MITOTANE
     Indication: ADRENOCORTICAL CARCINOMA
     Route: 065
  2. MITOTANE [Suspect]
     Active Substance: MITOTANE
     Indication: PITUITARY-DEPENDENT CUSHING^S SYNDROME

REACTIONS (4)
  - Ovarian cyst [Unknown]
  - Adnexal torsion [Unknown]
  - Ovarian cyst ruptured [Unknown]
  - Off label use [Unknown]
